FAERS Safety Report 21110661 (Version 1)
Quarter: 2022Q3

REPORT INFORMATION
  Report Type: Spontaneous
  Country: ES (occurrence: ES)
  Receive Date: 20220721
  Receipt Date: 20220721
  Transmission Date: 20221026
  Serious: Yes (Hospitalization)
  Sender: FDA-Public Use
  Company Number: None

PATIENT
  Age: 79 Year
  Sex: Female

DRUGS (7)
  1. CAPECITABINE [Suspect]
     Active Substance: CAPECITABINE
     Indication: Colon cancer
     Dosage: 2000.0 MG EVERY 12 H
     Dates: start: 20210202, end: 20210215
  2. AMLODIPINE, HYDROCHLOROTHIAZIDE, OLMESARTAN [Concomitant]
     Indication: Essential hypertension
     Dosage: STRENGTH: 40 MG / 10 MG / 12.5 MG, 28 TABLETS, 1.0 TABLET EVERY 24H
     Dates: start: 20200924
  3. LORAZEPAM [Concomitant]
     Active Substance: LORAZEPAM
     Indication: Anxiety
     Dosage: 2.0 MG EVERY 24 H NOC, 50 TABLETS, STRENGTH: 1 MG
     Dates: start: 20080524
  4. CALCIUM CARBONATE\CHOLECALCIFEROL [Concomitant]
     Active Substance: CALCIUM CARBONATE\CHOLECALCIFEROL
     Indication: Osteoporosis
     Dosage: 1.0 TABLET D-DINNER, STRENGTH: ,500 MG / 400 IU, 60 TABLETS
     Dates: start: 20150715
  5. OMEPRAZOLE [Concomitant]
     Active Substance: OMEPRAZOLE
     Indication: Dyspepsia
     Dosage: STRENGTH: 20 MG, 56 CAPSULES, 20.0 MG C/12 H
     Dates: start: 20180319
  6. ACETAMINOPHEN [Concomitant]
     Active Substance: ACETAMINOPHEN
     Indication: Osteoarthritis
     Dosage: 650.0 MG EVERY 12 H, STRENGTH:  650 MG, 40 TABLETS
     Dates: start: 20190213
  7. SIMVASTATIN [Concomitant]
     Active Substance: SIMVASTATIN
     Indication: Hypercholesterolaemia
     Dosage: STRENGTH: 10 MG, 28 TABLETS, 10.0 MG AT DINNER
     Dates: start: 20100713

REACTIONS (4)
  - Nausea [Recovered/Resolved]
  - Gastrointestinal toxicity [Recovered/Resolved]
  - Diarrhoea [Recovered/Resolved]
  - Vomiting [Recovered/Resolved]

NARRATIVE: CASE EVENT DATE: 20210219
